FAERS Safety Report 5005340-3 (Version None)
Quarter: 2006Q2

REPORT INFORMATION
  Report Type: 
  Country: None (occurrence: None)
  Receive Date: 20060515
  Receipt Date: 20060508
  Transmission Date: 20061013
  Serious: Yes (Hospitalization)
  Sender: FDA-Public Use
  Company Number: 2006BI004542

PATIENT
  Age: 53 Year
  Sex: Female

DRUGS (9)
  1. AVONEX [Suspect]
     Indication: MULTIPLE SCLEROSIS
     Dosage: 30 UG QW IM
     Route: 030
     Dates: start: 20000101
  2. AMITRIPTYLINE HCL [Concomitant]
  3. ZANAFLEX [Concomitant]
  4. TRYPTOPHAN [Concomitant]
  5. TAURINE [Concomitant]
  6. FLAXSEED OIL [Concomitant]
  7. SELENIUM SULFIDE [Concomitant]
  8. BLACK COHOSH [Concomitant]
  9. CALCIUM GLUCONATE [Concomitant]

REACTIONS (2)
  - CORONARY ARTERY OCCLUSION [None]
  - MYOCARDIAL INFARCTION [None]
